FAERS Safety Report 5056537-8 (Version None)
Quarter: 2006Q3

REPORT INFORMATION
  Report Type: 
  Country: None (occurrence: None)
  Receive Date: 20060720
  Receipt Date: 20060407
  Transmission Date: 20061208
  Serious: Yes (Death, Hospitalization)
  Sender: FDA-Public Use
  Company Number: US-JNJFOC-20060703819

PATIENT
  Age: 62 Year
  Sex: Female

DRUGS (3)
  1. REOPRO [Suspect]
     Indication: CARDIAC DISORDER
     Route: 042
  2. ENOXAPARIN SODIUM [Interacting]
     Indication: DRUG USE FOR UNKNOWN INDICATION
  3. ACETYLSALICYLIC ACID SRT [Interacting]
     Indication: DRUG USE FOR UNKNOWN INDICATION

REACTIONS (2)
  - DRUG INTERACTION [None]
  - SUBARACHNOID HAEMORRHAGE [None]
